FAERS Safety Report 20846914 (Version 1)
Quarter: 2022Q2

REPORT INFORMATION
  Report Type: Report from Study
  Country: US (occurrence: US)
  Receive Date: 20220519
  Receipt Date: 20220519
  Transmission Date: 20220720
  Serious: Yes (Hospitalization, Other)
  Sender: FDA-Public Use
  Company Number: US-BRISTOL-MYERS SQUIBB COMPANY-2022-039401

PATIENT
  Age: 76 Year
  Sex: Male
  Weight: 90.7 kg

DRUGS (2)
  1. NIVOLUMAB [Suspect]
     Active Substance: NIVOLUMAB
     Indication: Soft tissue neoplasm
     Route: 065
     Dates: start: 20210604, end: 20220118
  2. CABOZANTINIB [Suspect]
     Active Substance: CABOZANTINIB
     Indication: Soft tissue neoplasm
     Route: 065
     Dates: start: 20210604, end: 20220127

REACTIONS (3)
  - Hypothyroidism [Unknown]
  - Pericardial effusion [Unknown]
  - Dyspnoea [Unknown]

NARRATIVE: CASE EVENT DATE: 20220127
